FAERS Safety Report 11179694 (Version 1)
Quarter: 2015Q2

REPORT INFORMATION
  Report Type: Spontaneous
  Country: JP (occurrence: JP)
  Receive Date: 20150611
  Receipt Date: 20150611
  Transmission Date: 20150821
  Serious: Yes (Other)
  Sender: FDA-Public Use
  Company Number: JP-ACCORD-031368

PATIENT
  Age: 53 Year
  Sex: Female

DRUGS (3)
  1. PALIPERIDONE/PALIPERIDONE PALMITATE [Interacting]
     Active Substance: PALIPERIDONE
     Indication: SCHIZOPHRENIA
  2. AMLODIPINE [Suspect]
     Active Substance: AMLODIPINE BESYLATE
     Indication: HYPERTENSION
  3. CARBAMAZEPINE. [Interacting]
     Active Substance: CARBAMAZEPINE
     Indication: PRODUCT USED FOR UNKNOWN INDICATION
     Dosage: 200-600 MG/DAY (200, 400, 600 MG)

REACTIONS (3)
  - Drug level decreased [Unknown]
  - Blood pressure increased [Recovered/Resolved]
  - Drug interaction [Unknown]
